FAERS Safety Report 19050518 (Version 1)
Quarter: 2021Q1

REPORT INFORMATION
  Report Type: Spontaneous
  Country: US (occurrence: US)
  Receive Date: 20210323
  Receipt Date: 20210323
  Transmission Date: 20210420
  Serious: Yes (Hospitalization)
  Sender: FDA-Public Use
  Company Number: None

PATIENT
  Age: 82 Year
  Sex: Male

DRUGS (10)
  1. GLIPIZIDE?METFORMIN 5MG/500MG [Concomitant]
     Dates: start: 20190425
  2. NUPLAZID [Suspect]
     Active Substance: PIMAVANSERIN TARTRATE
     Indication: PARKINSON^S DISEASE
     Route: 048
     Dates: start: 20200603, end: 20210131
  3. FLOMAX 0.4 MG [Concomitant]
     Dates: start: 20190918
  4. NUPLAZID [Suspect]
     Active Substance: PIMAVANSERIN TARTRATE
     Indication: PSYCHOTIC DISORDER
     Route: 048
     Dates: start: 20200603, end: 20210131
  5. TOVIAZ [Concomitant]
     Active Substance: FESOTERODINE FUMARATE
     Dates: start: 20201116
  6. MEMANTINE 10 MG [Concomitant]
     Dates: start: 20190425
  7. PANTOPRAZOLE 40MG [Concomitant]
     Active Substance: PANTOPRAZOLE SODIUM
     Dates: start: 20190929
  8. CARBIDOPA/LEVODOPA/ENTACAPONE 50?200?200 [Concomitant]
     Dates: start: 20190314
  9. FUROSEMIDE 40 MG [Concomitant]
     Active Substance: FUROSEMIDE
     Dates: start: 20190721
  10. OLMESARTAN MEDOXOMIL 20 MG [Concomitant]
     Active Substance: OLMESARTAN MEDOXOMIL
     Dates: start: 20200527

REACTIONS (1)
  - Thrombosis [None]

NARRATIVE: CASE EVENT DATE: 20210301
